FAERS Safety Report 9828755 (Version 1)
Quarter: 2014Q1

REPORT INFORMATION
  Report Type: Spontaneous
  Country: US (occurrence: US)
  Receive Date: 20140117
  Receipt Date: 20140117
  Transmission Date: 20141002
  Serious: No
  Sender: FDA-Public Use
  Company Number: US-TEVA-456800USA

PATIENT
  Age: 69 Year
  Sex: Female
  Weight: 44.49 kg

DRUGS (15)
  1. AZILECT [Suspect]
     Indication: PARKINSON^S DISEASE
  2. SINEMET [Concomitant]
     Indication: PARKINSON^S DISEASE
  3. COMTAM [Concomitant]
     Indication: PARKINSON^S DISEASE
  4. TOPROL XL [Concomitant]
     Indication: HYPERTENSION
     Dosage: 150 MILLIGRAM DAILY;
  5. CLONIDINE [Concomitant]
     Indication: HYPERTENSION
     Dosage: .2 MILLIGRAM DAILY;
  6. XANAX [Concomitant]
     Indication: ANXIETY
  7. AMLODIPINE [Concomitant]
     Indication: SLEEP DISORDER
     Dosage: 5 MILLIGRAM DAILY;
  8. MULTIVITAMINS [Concomitant]
     Indication: SUPPLEMENTATION THERAPY
  9. CINNAMON [Concomitant]
     Indication: BLOOD GLUCOSE ABNORMAL
  10. CINNAMON [Concomitant]
     Indication: HIGH DENSITY LIPOPROTEIN ABNORMAL
  11. CALCIUM CITRATE [Concomitant]
     Indication: OSTEOPOROSIS
  12. ADVAIR [Concomitant]
     Indication: RESPIRATORY DISORDER
  13. XOPENEX [Concomitant]
     Indication: WHEEZING
  14. COQ10 [Concomitant]
     Indication: SUPPLEMENTATION THERAPY
  15. CLIMARA [Concomitant]
     Indication: OSTEOPOROSIS POSTMENOPAUSAL
     Route: 062

REACTIONS (2)
  - Gingival bleeding [Recovered/Resolved]
  - Epistaxis [Recovered/Resolved]
